FAERS Safety Report 5655959-1 (Version None)
Quarter: 2008Q1

REPORT INFORMATION
  Report Type: 
  Country: None (occurrence: None)
  Receive Date: 20080307
  Receipt Date: 20080224
  Transmission Date: 20080703
  Serious: Yes (Other)
  Sender: FDA-Public Use
  Company Number: US-PFIZER INC-2008018128

PATIENT
  Sex: Male

DRUGS (1)
  1. CHANTIX [Suspect]
     Indication: SMOKING CESSATION THERAPY
     Dates: start: 20071203, end: 20080223

REACTIONS (8)
  - ABASIA [None]
  - DIZZINESS [None]
  - DYSGEUSIA [None]
  - HOMICIDAL IDEATION [None]
  - IMPAIRED DRIVING ABILITY [None]
  - NAUSEA [None]
  - PANIC ATTACK [None]
  - VOMITING [None]
